FAERS Safety Report 19870308 (Version 2)
Quarter: 2021Q3

REPORT INFORMATION
  Report Type: Report from Study
  Country: None (occurrence: BR)
  Receive Date: 20210922
  Receipt Date: 20210924
  Transmission Date: 20211014
  Serious: Yes (Hospitalization)
  Sender: FDA-Public Use
  Company Number: BR-ABBVIE-21K-020-4085482-00

PATIENT
  Age: 34 Year
  Sex: Male
  Weight: 110 kg

DRUGS (3)
  1. HUMIRA [Suspect]
     Active Substance: ADALIMUMAB
     Indication: ANKYLOSING SPONDYLITIS
     Route: 058
     Dates: start: 20130520
  2. HUMIRA [Suspect]
     Active Substance: ADALIMUMAB
     Route: 058
     Dates: end: 202102
  3. HUMIRA [Suspect]
     Active Substance: ADALIMUMAB
     Route: 058
     Dates: start: 20210920

REACTIONS (9)
  - COVID-19 [Recovered/Resolved]
  - Ankylosing spondylitis [Not Recovered/Not Resolved]
  - Headache [Unknown]
  - Illness [Unknown]
  - Infected bite [Unknown]
  - Infection [Unknown]
  - Metabolic surgery [Recovered/Resolved]
  - Immunodeficiency [Unknown]
  - Malaise [Unknown]

NARRATIVE: CASE EVENT DATE: 20210303
